FAERS Safety Report 8839066 (Version 2)
Quarter: 2012Q4

REPORT INFORMATION
  Report Type: 
  Country: US (occurrence: US)
  Receive Date: 20121015
  Receipt Date: 20121115
  Transmission Date: 20130627
  Serious: No
  Sender: FDA-Public Use
  Company Number: US-BIOGENIDEC-2012BI042901

PATIENT
  Sex: Female

DRUGS (2)
  1. TYSABRI [Suspect]
     Indication: MULTIPLE SCLEROSIS
     Route: 042
     Dates: start: 20120123
  2. AVONEX [Concomitant]
     Indication: MULTIPLE SCLEROSIS
     Route: 030

REACTIONS (14)
  - Drug ineffective [Recovered/Resolved]
  - Visual impairment [Not Recovered/Not Resolved]
  - Migraine [Unknown]
  - Optic neuritis [Not Recovered/Not Resolved]
  - Eye pain [Not Recovered/Not Resolved]
  - Memory impairment [Unknown]
  - Secondary progressive multiple sclerosis [Unknown]
  - Frustration [Unknown]
  - Device breakage [Unknown]
  - Malaise [Recovered/Resolved]
  - Fatigue [Recovered/Resolved]
  - Multiple sclerosis [Unknown]
  - Dental caries [Unknown]
  - Sluggishness [Unknown]
